FAERS Safety Report 7678583-8 (Version None)
Quarter: 2011Q3

REPORT INFORMATION
  Report Type: 
  Country: None (occurrence: None)
  Receive Date: 20110811
  Receipt Date: 20110802
  Transmission Date: 20111222
  Serious: Yes (Hospitalization)
  Sender: FDA-Public Use
  Company Number: PHHY2011NL70174

PATIENT
  Age: 18 Year
  Sex: Male

DRUGS (1)
  1. PROPRANOLOL [Suspect]
     Dosage: 80 MG, UNK
     Route: 048

REACTIONS (9)
  - CARDIO-RESPIRATORY ARREST [None]
  - CARDIAC ARREST [None]
  - HUNGER [None]
  - BRADYCARDIA [None]
  - FEELING HOT [None]
  - CIRCULATORY COLLAPSE [None]
  - RESPIRATORY ARREST [None]
  - BLOOD PRESSURE DECREASED [None]
  - CONVULSION [None]
